FAERS Safety Report 23078408 (Version 2)
Quarter: 2024Q4

REPORT INFORMATION
  Report Type: Spontaneous
  Country: HR (occurrence: HR)
  Receive Date: 20231018
  Receipt Date: 20241023
  Transmission Date: 20250115
  Serious: Yes (Death, Hospitalization, Other)
  Sender: SANOFI AVENTIS
  Company Number: HR-SA-2018SA206678

PATIENT
  Age: 51 Year
  Sex: Female

DRUGS (4)
  1. ENOXAPARIN SODIUM [Suspect]
     Active Substance: ENOXAPARIN SODIUM
     Indication: Deep vein thrombosis
     Dosage: 60 MG, BID, INJECTION
     Route: 058
  2. PREDNISONE [Suspect]
     Active Substance: PREDNISONE
     Indication: Inflammation
  3. CLINDAMYCIN HYDROCHLORIDE [Suspect]
     Active Substance: CLINDAMYCIN HYDROCHLORIDE
     Indication: Arthritis bacterial
  4. CIPROFLOXACIN HYDROCHLORIDE [Suspect]
     Active Substance: CIPROFLOXACIN HYDROCHLORIDE
     Indication: Arthritis bacterial

REACTIONS (7)
  - Abdominal wall haematoma [Fatal]
  - Tachycardia [Fatal]
  - Haemodynamic instability [Fatal]
  - Shock haemorrhagic [Fatal]
  - Loss of consciousness [Fatal]
  - Cardiac arrest [Fatal]
  - Respiratory arrest [Fatal]
